FAERS Safety Report 10076006 (Version 1)
Quarter: 2014Q2

REPORT INFORMATION
  Report Type: Spontaneous
  Country: NL (occurrence: NL)
  Receive Date: 20140414
  Receipt Date: 20140414
  Transmission Date: 20141212
  Serious: Yes (Death, Other)
  Sender: FDA-Public Use
  Company Number: NL-BAYER-2014-051291

PATIENT
  Age: 69 Year
  Sex: Male

DRUGS (4)
  1. ACETYLSALICYLIC ACID (} 100 MG) [Suspect]
     Indication: CARDIOVASCULAR EVENT PROPHYLAXIS
     Dosage: 300 MG, UNK
  2. CLOPIDOGREL [Suspect]
     Indication: CARDIOVASCULAR EVENT PROPHYLAXIS
     Dosage: LOADING DOSE 600 MG, ONCE
  3. PRASUGREL [Suspect]
     Indication: CARDIOVASCULAR EVENT PROPHYLAXIS
     Dosage: 60 MG, UNK
  4. HEPARIN [Suspect]
     Indication: CARDIOVASCULAR EVENT PROPHYLAXIS
     Dosage: 5000 IU, UNK

REACTIONS (4)
  - Pulmonary alveolar haemorrhage [Fatal]
  - Bradycardia [None]
  - Respiratory failure [Fatal]
  - Labelled drug-drug interaction medication error [None]
